FAERS Safety Report 11051121 (Version 1)
Quarter: 2015Q2

REPORT INFORMATION
  Report Type: Report from Study
  Country: FR (occurrence: FR)
  Receive Date: 20150421
  Receipt Date: 20150421
  Transmission Date: 20150821
  Serious: Yes (Hospitalization)
  Sender: FDA-Public Use
  Company Number: FR-ROCHE-1161929

PATIENT
  Age: 63 Year
  Sex: Female

DRUGS (7)
  1. RITUXIMAB [Suspect]
     Active Substance: RITUXIMAB
     Indication: RHEUMATOID ARTHRITIS
     Dosage: SUBSEQUENT DOSES ON 13/JUN/2007, 20/DEC/2007, 02/JAN/2008, 20/OCT/ 2010, 04/NOV/2010
     Route: 042
     Dates: start: 20070520
  2. METHOTREXATE [Concomitant]
     Active Substance: METHOTREXATE
  3. CORTANCYL [Concomitant]
     Active Substance: PREDNISONE
     Route: 065
     Dates: start: 20101104
  4. CORTANCYL [Concomitant]
     Active Substance: PREDNISONE
     Route: 065
     Dates: start: 20070613
  5. TOCILIZUMAB [Suspect]
     Active Substance: TOCILIZUMAB
     Indication: PRODUCT USED FOR UNKNOWN INDICATION
     Route: 065
     Dates: start: 20110524
  6. ETANERCEPT [Concomitant]
     Active Substance: ETANERCEPT
     Route: 065
     Dates: start: 20121012
  7. CORTANCYL [Concomitant]
     Active Substance: PREDNISONE
     Route: 065
     Dates: start: 20080102

REACTIONS (15)
  - Herpes oesophagitis [Unknown]
  - Phlebitis [Recovered/Resolved]
  - Diabetes mellitus inadequate control [Recovered/Resolved]
  - General physical health deterioration [Recovered/Resolved]
  - Asthenia [Recovered/Resolved]
  - Osteitis [Recovering/Resolving]
  - Aphthous stomatitis [Recovered/Resolved]
  - Thrombosis [Unknown]
  - Bronchopneumonia [Unknown]
  - Weight decreased [Recovered/Resolved]
  - Chronic sinusitis [Recovering/Resolving]
  - Superinfection fungal [Recovered/Resolved]
  - Acute kidney injury [Unknown]
  - Pulmonary embolism [Recovered/Resolved]
  - Cardiac failure [Unknown]

NARRATIVE: CASE EVENT DATE: 20070618
